FAERS Safety Report 12203497 (Version 13)
Quarter: 2018Q1

REPORT INFORMATION
  Report Type: Spontaneous
  Country: US (occurrence: US)
  Receive Date: 20160323
  Receipt Date: 20180228
  Transmission Date: 20180508
  Serious: Yes (Hospitalization, Congenital Anomaly, Other)
  Sender: FDA-Public Use
  Company Number: PHEH2016US006800

PATIENT
  Sex: Female

DRUGS (1)
  1. ZOFRAN [Suspect]
     Active Substance: ONDANSETRON HYDROCHLORIDE
     Indication: FOETAL EXPOSURE DURING PREGNANCY
     Dosage: MOTHER DOSE: 4 MG, ONCE PER DAY (QD)
     Route: 064

REACTIONS (89)
  - Ventricular septal defect [Unknown]
  - Congenital central nervous system anomaly [Unknown]
  - Congenital eye disorder [Unknown]
  - Autism spectrum disorder [Unknown]
  - Chronic gastritis [Unknown]
  - Appendix disorder [Unknown]
  - Colitis [Unknown]
  - Tachycardia [Unknown]
  - Pyrexia [Unknown]
  - Generalised anxiety disorder [Unknown]
  - Abdominal pain upper [Unknown]
  - Hypoaesthesia [Unknown]
  - Disturbance in attention [Unknown]
  - Dry skin [Unknown]
  - Mental disorder [Unknown]
  - Adjustment disorder with depressed mood [Unknown]
  - Heart disease congenital [Unknown]
  - Congenital hydronephrosis [Unknown]
  - Strabismus congenital [Unknown]
  - Brain malformation [Unknown]
  - Staphylococcal infection [Unknown]
  - Premature baby [Unknown]
  - Anhedonia [Unknown]
  - Pain [Unknown]
  - Stubbornness [Unknown]
  - Iron deficiency anaemia [Unknown]
  - Fatigue [Unknown]
  - Congenital anomaly [Unknown]
  - Foetal exposure during pregnancy [Unknown]
  - Craniocerebral injury [Unknown]
  - Mitral valve incompetence [Unknown]
  - Duodenitis [Unknown]
  - High arched palate [Unknown]
  - Cardiac murmur [Unknown]
  - Respiratory distress [Unknown]
  - Seizure [Unknown]
  - Partial seizures [Unknown]
  - Balance disorder [Unknown]
  - Sensory processing disorder [Unknown]
  - Motor developmental delay [Unknown]
  - Dehydration [Unknown]
  - Conduct disorder [Unknown]
  - Diarrhoea [Unknown]
  - Anxiety [Unknown]
  - Speech sound disorder [Unknown]
  - Urticaria [Unknown]
  - Congenital jaw malformation [Unknown]
  - Clinodactyly [Unknown]
  - Crohn^s disease [Unknown]
  - Developmental delay [Unknown]
  - Abdominal pain [Unknown]
  - Crying [Unknown]
  - Toothache [Unknown]
  - Low set ears [Unknown]
  - Craniosynostosis [Unknown]
  - Poor feeding infant [Unknown]
  - Low birth weight baby [Unknown]
  - Tricuspid valve incompetence [Unknown]
  - Injury [Unknown]
  - Dysarthria [Unknown]
  - Pharyngitis [Unknown]
  - Oppositional defiant disorder [Unknown]
  - Hypotonia [Unknown]
  - Pruritus [Unknown]
  - Affective disorder [Unknown]
  - Dysmorphism [Unknown]
  - Left-to-right cardiac shunt [Unknown]
  - Congenital hearing disorder [Unknown]
  - Hypertelorism of orbit [Unknown]
  - Bipolar disorder [Unknown]
  - Emotional distress [Unknown]
  - Microcytic anaemia [Unknown]
  - Bandaemia [Unknown]
  - Gastroenteritis [Unknown]
  - Coordination abnormal [Unknown]
  - Learning disorder [Unknown]
  - Atrial septal defect [Unknown]
  - Abnormal palmar/plantar creases [Unknown]
  - Duane^s syndrome [Unknown]
  - Encephalopathy [Unknown]
  - Foot deformity [Unknown]
  - Inflammatory bowel disease [Unknown]
  - Failure to thrive [Unknown]
  - Plasma protein metabolism disorder [Unknown]
  - Cellulitis [Unknown]
  - Malnutrition [Unknown]
  - Attention deficit/hyperactivity disorder [Unknown]
  - Dizziness [Unknown]
  - Intellectual disability [Unknown]
